FAERS Safety Report 24741904 (Version 1)
Quarter: 2024Q4

REPORT INFORMATION
  Report Type: Spontaneous
  Country: IN (occurrence: IN)
  Receive Date: 20241217
  Receipt Date: 20241217
  Transmission Date: 20250114
  Serious: Yes (Death, Hospitalization, Other)
  Sender: AZURITY PHARMACEUTICALS
  Company Number: IN-AZURITY PHARMACEUTICALS, INC.-AZR202412-001260

PATIENT
  Age: 45 Year
  Sex: Female

DRUGS (9)
  1. METHOTREXATE [Suspect]
     Active Substance: METHOTREXATE
     Indication: Erythrodermic psoriasis
     Dosage: 7.5 MILLIGRAM, ONCE A WEEK
     Route: 048
  2. METHOTREXATE [Suspect]
     Active Substance: METHOTREXATE
     Indication: Pustular psoriasis
     Dosage: 15 MILLIGRAM, ONCE A WEEK
     Route: 048
  3. METHOTREXATE [Suspect]
     Active Substance: METHOTREXATE
     Indication: Psoriatic arthropathy
     Dosage: PATIENT HAD TAKEN METHOTREXATE 15 MG ONCE DAILY FOR LAST 10 DAYS EXCEPT ON SUNDAY WHEN SHE TOOK FOLI
     Route: 048
  4. ACITRETIN [Suspect]
     Active Substance: ACITRETIN
     Indication: Erythrodermic psoriasis
     Dosage: 25 MILLIGRAM, ONCE DAILY
     Route: 048
  5. ACITRETIN [Suspect]
     Active Substance: ACITRETIN
     Indication: Pustular psoriasis
  6. ACITRETIN [Suspect]
     Active Substance: ACITRETIN
     Indication: Psoriatic arthropathy
  7. CYCLOSPORINE [Suspect]
     Active Substance: CYCLOSPORINE
     Indication: Pustular psoriasis
     Dosage: 100 MILLIGRAM, BID (TWICE DAILY)
     Route: 065
  8. CYCLOSPORINE [Suspect]
     Active Substance: CYCLOSPORINE
     Dosage: TAPERING DOSES OF 100 MG ONCE DAILY
     Route: 065
  9. FOLIC ACID [Concomitant]
     Active Substance: FOLIC ACID
     Indication: Product used for unknown indication
     Dosage: UNK
     Route: 065

REACTIONS (10)
  - Peripheral circulatory failure [Fatal]
  - Epistaxis [Unknown]
  - Coagulopathy [Unknown]
  - Septic shock [Fatal]
  - Acute kidney injury [Unknown]
  - Pancytopenia [Unknown]
  - Hepatitis [Unknown]
  - Mouth ulceration [Unknown]
  - Toxicity to various agents [Unknown]
  - Product prescribing error [Unknown]
